FAERS Safety Report 19753006 (Version 2)
Quarter: 2022Q3

REPORT INFORMATION
  Report Type: Report from Study
  Country: US (occurrence: US)
  Receive Date: 20210826
  Receipt Date: 20220708
  Transmission Date: 20221027
  Serious: Yes (Hospitalization)
  Sender: FDA-Public Use
  Company Number: US-TAKEDA-2021TUS052650

PATIENT
  Age: 59 Year
  Sex: Female
  Weight: 79.365 kg

DRUGS (3)
  1. BRIGATINIB [Suspect]
     Active Substance: BRIGATINIB
     Indication: Lung neoplasm malignant
     Dosage: 180 MILLIGRAM
     Route: 065
     Dates: start: 202106
  2. BRIGATINIB [Suspect]
     Active Substance: BRIGATINIB
     Dosage: 120 MILLIGRAM, QD
     Route: 065
     Dates: start: 2021
  3. LOVENOX [Concomitant]
     Active Substance: ENOXAPARIN SODIUM
     Indication: Blood pressure measurement
     Dosage: 40 MILLIGRAM, QD
     Route: 065

REACTIONS (9)
  - Abdominal pain upper [Unknown]
  - Blood pressure increased [Unknown]
  - Ligament sprain [Unknown]
  - Feeling abnormal [Unknown]
  - Headache [Unknown]
  - Urinary tract infection [Unknown]
  - Urticaria [Unknown]
  - Product dose omission issue [Unknown]
  - Product distribution issue [Unknown]

NARRATIVE: CASE EVENT DATE: 20210814
